FAERS Safety Report 18947879 (Version 3)
Quarter: 2021Q2

REPORT INFORMATION
  Report Type: Spontaneous
  Country: US (occurrence: US)
  Receive Date: 20210227
  Receipt Date: 20210415
  Transmission Date: 20210717
  Serious: No
  Sender: FDA-Public Use
  Company Number: US-LUPIN PHARMACEUTICALS INC.-2021-00943

PATIENT
  Sex: Female

DRUGS (2)
  1. FAMOTIDINE FOR ORAL SUSPENSION [Suspect]
     Active Substance: FAMOTIDINE
     Dosage: UNK
     Route: 048
  2. FAMOTIDINE FOR ORAL SUSPENSION [Suspect]
     Active Substance: FAMOTIDINE
     Indication: PRODUCT USED FOR UNKNOWN INDICATION
     Dosage: UNK
     Route: 048

REACTIONS (5)
  - No adverse event [Unknown]
  - Product use issue [Unknown]
  - Product taste abnormal [Unknown]
  - Product odour abnormal [Unknown]
  - Poor quality product administered [Unknown]
